FAERS Safety Report 4428986-X (Version None)
Quarter: 2004Q3

REPORT INFORMATION
  Report Type: 
  Country: None (occurrence: None)
  Receive Date: 20040818
  Receipt Date: 20040812
  Transmission Date: 20050211
  Serious: Yes (Hospitalization)
  Sender: FDA-Public Use
  Company Number: PHEH2004US08769

PATIENT
  Age: 75 Year
  Sex: Female

DRUGS (3)
  1. MIACALCIN [Suspect]
     Indication: OSTEOPOROSIS
     Dosage: 200 IU, QD
     Route: 045
  2. COUMADIN [Suspect]
     Dosage: UNK, UNK
     Dates: start: 20031101
  3. DIGOXIN [Concomitant]

REACTIONS (5)
  - ATRIAL FIBRILLATION [None]
  - DRY MOUTH [None]
  - HEAD DISCOMFORT [None]
  - NASAL DRYNESS [None]
  - PROTHROMBIN TIME RATIO DECREASED [None]
